FAERS Safety Report 5574951-9 (Version None)
Quarter: 2007Q4

REPORT INFORMATION
  Report Type: 
  Country: None (occurrence: None)
  Receive Date: 20071227
  Receipt Date: 20071218
  Transmission Date: 20080405
  Serious: Yes (Life-Threatening, Hospitalization)
  Sender: FDA-Public Use
  Company Number: B0485748A

PATIENT
  Age: 84 Year
  Sex: Female
  Weight: 80 kg

DRUGS (1)
  1. ARIXTRA [Suspect]
     Indication: PROPHYLAXIS
     Dosage: 7.5MG PER DAY
     Route: 058
     Dates: start: 20070714, end: 20070721

REACTIONS (3)
  - HAEMATOMA [None]
  - INCORRECT DOSE ADMINISTERED [None]
  - PULMONARY HAEMORRHAGE [None]
